FAERS Safety Report 9312586 (Version 1)
Quarter: 2013Q2

REPORT INFORMATION
  Report Type: Report from Study
  Country: US (occurrence: US)
  Receive Date: 20130528
  Receipt Date: 20130528
  Transmission Date: 20140414
  Serious: Yes (Death, Hospitalization)
  Sender: FDA-Public Use
  Company Number: US-GLAXOSMITHKLINE-A0900231A

PATIENT
  Age: 48 Year
  Sex: Female
  Weight: 62.7 kg

DRUGS (4)
  1. PAZOPANIB [Suspect]
     Indication: BREAST CANCER
     Dosage: 800MG PER DAY
     Route: 048
     Dates: start: 20101105, end: 20101203
  2. PACLITAXEL [Suspect]
     Indication: BREAST CANCER
     Dosage: 80MGM2 CYCLIC
     Route: 042
     Dates: start: 20101105, end: 20101203
  3. DOXORUBICIN [Suspect]
     Indication: BREAST CANCER
     Dosage: 60MGM2 CYCLIC
     Route: 042
     Dates: start: 20100813, end: 20101015
  4. CYCLOPHOSPHAMIDE [Suspect]
     Indication: BREAST CANCER
     Dosage: 600MGM2 CYCLIC
     Route: 042
     Dates: start: 20100813, end: 20101015

REACTIONS (11)
  - Hypertension [Recovered/Resolved]
  - Convulsion [Fatal]
  - Fatigue [Unknown]
  - Pain [Unknown]
  - Pain [Unknown]
  - Decreased appetite [Unknown]
  - Hypotension [Unknown]
  - Bradycardia [Unknown]
  - Depressed level of consciousness [Unknown]
  - Disease progression [Unknown]
  - Metastases to central nervous system [Unknown]
